FAERS Safety Report 8530716-7 (Version None)
Quarter: 2012Q3

REPORT INFORMATION
  Report Type: 
  Country: None (occurrence: None)
  Receive Date: 20120723
  Receipt Date: 20120719
  Transmission Date: 20120928
  Serious: Yes (Death)
  Sender: FDA-Public Use
  Company Number: JP-B.I. PHARMACEUTICALS,INC./RIDGEFIELD-2012-BP-13174NB

PATIENT
  Sex: Male
  Weight: 76 kg

DRUGS (28)
  1. HEPARIN SODIUM [Suspect]
     Indication: VASCULAR GRAFT
  2. BEPRICOR [Concomitant]
     Indication: ATRIAL FIBRILLATION
     Route: 048
     Dates: start: 20120315
  3. PRECEDEX [Concomitant]
     Route: 065
  4. BICANATE [Concomitant]
     Route: 065
  5. DOPAMINE HCL [Concomitant]
     Route: 065
  6. LIDOCAINE [Concomitant]
     Route: 065
  7. MIOTECTER [Concomitant]
     Route: 065
  8. NICORANDIL [Concomitant]
     Route: 065
  9. SORASILOL [Concomitant]
     Route: 065
  10. ROCURONIUM BROMIDE [Concomitant]
     Route: 065
  11. PROPOFOL [Concomitant]
     Route: 065
  12. HANP [Concomitant]
     Route: 065
  13. DROPERIDOL [Concomitant]
     Route: 065
  14. NEO-SYNESIN [Concomitant]
     Route: 065
  15. PRADAXA [Suspect]
     Indication: ATRIAL FIBRILLATION
     Dosage: 220 MG
     Route: 048
     Dates: start: 20110930, end: 20120604
  16. DOBUPUM [Concomitant]
     Route: 065
  17. SALINHES [Concomitant]
     Route: 065
  18. MANNIGEN [Concomitant]
     Route: 065
  19. ASPIRIN [Suspect]
     Indication: ANTIPLATELET THERAPY
     Dosage: 100 MG
     Route: 048
     Dates: start: 20110901, end: 20120604
  20. BEPRICOR [Concomitant]
     Route: 065
  21. DILTIAZEM HCL [Concomitant]
     Route: 065
  22. ULTIVA [Concomitant]
     Route: 065
  23. POTASSIUM ASPARTATE [Concomitant]
     Route: 065
  24. REBAMIPIDE [Concomitant]
     Route: 065
  25. FENTANYL [Concomitant]
     Route: 065
  26. FUROSEMIDE [Concomitant]
     Route: 065
  27. HEPARIN SODIUM [Suspect]
     Indication: ANTICOAGULANT THERAPY
     Dosage: 20000 U
     Route: 042
     Dates: start: 20120605, end: 20120605
  28. CEFAZOLIN SODIUM [Concomitant]
     Route: 065

REACTIONS (4)
  - MULTI-ORGAN FAILURE [None]
  - SHOCK HAEMORRHAGIC [None]
  - HAEMORRHAGE [None]
  - AORTIC DISSECTION [None]
